FAERS Safety Report 5961675-9 (Version None)
Quarter: 2008Q4

REPORT INFORMATION
  Report Type: 
  Country: None (occurrence: None)
  Receive Date: 20081121
  Receipt Date: 20081113
  Transmission Date: 20090506
  Serious: Yes (Other)
  Sender: FDA-Public Use
  Company Number: US-JNJFOC-20081103623

PATIENT
  Sex: Male

DRUGS (2)
  1. REMICADE [Suspect]
     Indication: BEHCET'S SYNDROME
     Dosage: DOSE RECENTLY INCREASED
     Route: 042
  2. METHOTREXATE [Concomitant]

REACTIONS (4)
  - AURA [None]
  - BODY TEMPERATURE INCREASED [None]
  - DEREALISATION [None]
  - MENTAL STATUS CHANGES [None]
